FAERS Safety Report 8984839 (Version 3)
Quarter: 2013Q1

REPORT INFORMATION
  Report Type: Spontaneous
  Country: GB (occurrence: GB)
  Receive Date: 20121226
  Receipt Date: 20130129
  Transmission Date: 20140127
  Serious: Yes (Hospitalization, Other)
  Sender: FDA-Public Use
  Company Number: PHFR2012GB006599

PATIENT
  Sex: Male

DRUGS (2)
  1. TEGRETOL [Suspect]
     Dosage: UNK UKN, UNK
     Route: 048
  2. LEVETIRACETAM [Concomitant]
     Dosage: 1250 MG, DAILY
     Route: 048

REACTIONS (5)
  - Feeling drunk [Recovered/Resolved]
  - Muscle twitching [Not Recovered/Not Resolved]
  - Dysarthria [Recovered/Resolved]
  - Epilepsy [Recovered/Resolved]
  - Somnolence [Recovered/Resolved]
